FAERS Safety Report 6958540-7 (Version None)
Quarter: 2010Q3

REPORT INFORMATION
  Report Type: 
  Country: None (occurrence: None)
  Receive Date: 20100831
  Receipt Date: 20100817
  Transmission Date: 20110219
  Serious: Yes (Life-Threatening, Hospitalization)
  Sender: FDA-Public Use
  Company Number: JP-MERCK-1005USA01685

PATIENT
  Age: 36 Year
  Sex: Female
  Weight: 47 kg

DRUGS (8)
  1. COZAAR [Suspect]
     Indication: HYPERTENSION
     Route: 048
     Dates: start: 20100415, end: 20100506
  2. TAKEPRON [Suspect]
     Indication: PROPHYLAXIS AGAINST GASTROINTESTINAL ULCER
     Route: 048
     Dates: start: 20100402, end: 20100506
  3. COTRIM [Suspect]
     Indication: ANTIFUNGAL PROPHYLAXIS
     Route: 048
     Dates: start: 20100402, end: 20100506
  4. CRESTOR [Suspect]
     Indication: HYPERCHOLESTEROLAEMIA
     Route: 048
     Dates: start: 20100415, end: 20100506
  5. ALFAROL [Concomitant]
     Route: 048
     Dates: start: 20100402
  6. PREDONINE [Concomitant]
     Indication: IMMUNOSUPPRESSION
     Route: 048
     Dates: start: 20100420, end: 20100425
  7. PREDONINE [Concomitant]
     Route: 048
     Dates: start: 20100426
  8. FUNGIZONE [Concomitant]
     Indication: PROPHYLAXIS
     Route: 048
     Dates: start: 20100402

REACTIONS (2)
  - AGRANULOCYTOSIS [None]
  - ECZEMA [None]
